FAERS Safety Report 22610872 (Version 1)
Quarter: 2023Q2

REPORT INFORMATION
  Report Type: Other
  Country: US (occurrence: None)
  Receive Date: 20230616
  Receipt Date: 20230616
  Transmission Date: 20230722
  Serious: Yes (Death, Other)
  Sender: FDA-Public Use
  Company Number: US-ROCHE-3369039

PATIENT

DRUGS (17)
  1. ERLOTINIB [Suspect]
     Active Substance: ERLOTINIB
     Indication: Neoplasm malignant
     Route: 065
  2. ALECTINIB [Suspect]
     Active Substance: ALECTINIB
     Indication: Neoplasm malignant
     Route: 065
  3. CABOZANTINIB [Suspect]
     Active Substance: CABOZANTINIB
     Indication: Neoplasm malignant
     Route: 065
  4. CRIZOTINIB [Suspect]
     Active Substance: CRIZOTINIB
     Indication: Neoplasm malignant
     Route: 065
  5. DASATINIB [Suspect]
     Active Substance: DASATINIB
     Indication: Neoplasm malignant
     Route: 065
  6. IBRUTINIB [Suspect]
     Active Substance: IBRUTINIB
     Indication: Neoplasm malignant
     Route: 065
  7. IMATINIB [Suspect]
     Active Substance: IMATINIB
     Indication: Neoplasm malignant
     Route: 065
  8. LAPATINIB [Suspect]
     Active Substance: LAPATINIB
     Indication: Neoplasm malignant
     Route: 065
  9. LENVATINIB [Suspect]
     Active Substance: LENVATINIB
     Indication: Neoplasm malignant
     Route: 065
  10. MIDOSTAURIN [Suspect]
     Active Substance: MIDOSTAURIN
     Indication: Neoplasm malignant
     Route: 065
  11. NILOTINIB [Suspect]
     Active Substance: NILOTINIB
     Indication: Neoplasm malignant
     Route: 065
  12. PAZOPANIB [Suspect]
     Active Substance: PAZOPANIB
     Indication: Neoplasm malignant
     Route: 065
  13. PONATINIB [Suspect]
     Active Substance: PONATINIB
     Indication: Neoplasm malignant
     Route: 065
  14. REGORAFENIB [Suspect]
     Active Substance: REGORAFENIB
     Indication: Neoplasm malignant
     Route: 065
  15. RUXOLITINIB [Suspect]
     Active Substance: RUXOLITINIB
     Indication: Neoplasm malignant
     Route: 065
  16. SORAFENIB [Suspect]
     Active Substance: SORAFENIB
     Indication: Neoplasm malignant
     Route: 065
  17. SUNITINIB [Suspect]
     Active Substance: SUNITINIB
     Indication: Neoplasm malignant
     Route: 065

REACTIONS (5)
  - Myocardial infarction [Unknown]
  - Cardiac failure [Unknown]
  - Cerebrovascular accident [Unknown]
  - Cardiac death [Fatal]
  - Electrocardiogram QT prolonged [Unknown]
